FAERS Safety Report 24442153 (Version 1)
Quarter: 2024Q4

REPORT INFORMATION
  Report Type: Report from Study
  Country: US (occurrence: US)
  Receive Date: 20241016
  Receipt Date: 20241016
  Transmission Date: 20250114
  Serious: Yes (Death)
  Sender: INSMED
  Company Number: US-INSMED, INC.-2023-02216-US

PATIENT
  Sex: Female

DRUGS (3)
  1. ARIKAYCE [Suspect]
     Active Substance: AMIKACIN
     Indication: Pneumonia
     Dosage: 590 MILLIGRAM, QD
     Route: 055
     Dates: start: 20230222, end: 2023
  2. ARIKAYCE [Suspect]
     Active Substance: AMIKACIN
     Indication: Mycobacterial infection
     Dosage: 590 MILLIGRAM, QD
     Route: 055
     Dates: start: 2023, end: 20231109
  3. ARIKAYCE [Suspect]
     Active Substance: AMIKACIN
     Dosage: 590 MILLIGRAM, QD
     Route: 055
     Dates: start: 2023, end: 2024

REACTIONS (10)
  - Death [Fatal]
  - Oxygen saturation decreased [Unknown]
  - Hospice care [Unknown]
  - Infection [Unknown]
  - Fatigue [Unknown]
  - Malaise [Unknown]
  - Illness [Unknown]
  - Product dose omission issue [Unknown]
  - Intentional dose omission [Unknown]
  - Therapy interrupted [Unknown]

NARRATIVE: CASE EVENT DATE: 20230101
